FAERS Safety Report 5728053-9 (Version None)
Quarter: 2008Q2

REPORT INFORMATION
  Report Type: 
  Country: None (occurrence: None)
  Receive Date: 20080505
  Receipt Date: 20080423
  Transmission Date: 20081010
  Serious: Yes (Other)
  Sender: FDA-Public Use
  Company Number: IE-PFIZER INC-2008036550

PATIENT
  Age: 50 Year
  Sex: Female

DRUGS (4)
  1. DETRUSITOL SR [Suspect]
     Indication: HYPERTONIC BLADDER
     Dosage: TEXT:4 MG DAILY EVERY DAY TDD:4 MG
     Route: 048
     Dates: start: 20080315, end: 20080316
  2. ARCOXIA [Concomitant]
  3. ELTROXIN [Concomitant]
  4. ALL OTHER THERAPEUTIC PRODUCTS [Concomitant]

REACTIONS (2)
  - PAIN IN EXTREMITY [None]
  - SLEEP DISORDER [None]
